FAERS Safety Report 6604906-4 (Version None)
Quarter: 2010Q1

REPORT INFORMATION
  Report Type: 
  Country: None (occurrence: None)
  Receive Date: 20100226
  Receipt Date: 20100218
  Transmission Date: 20100710
  Serious: Yes (Other)
  Sender: FDA-Public Use
  Company Number: B0636001A

PATIENT
  Sex: Female

DRUGS (6)
  1. SERETIDE [Suspect]
     Dosage: 5PUFF TWICE PER DAY
     Route: 055
     Dates: start: 20100108, end: 20100115
  2. ZINNAT [Concomitant]
     Route: 048
  3. MONTELUKAST [Concomitant]
     Route: 048
  4. FLUTICASONE [Concomitant]
     Route: 065
     Dates: start: 20100122, end: 20100218
  5. ALBUTEROL [Concomitant]
     Route: 065
     Dates: start: 20100122
  6. UNKNOWN [Concomitant]

REACTIONS (3)
  - LEUKOCYTOSIS [None]
  - OVERDOSE [None]
  - WHEEZING [None]
